FAERS Safety Report 12210297 (Version 1)
Quarter: 2016Q1

REPORT INFORMATION
  Report Type: Other
  Country: NL (occurrence: NL)
  Receive Date: 20160325
  Receipt Date: 20160325
  Transmission Date: 20160526
  Serious: Yes (Hospitalization)
  Sender: FDA-Public Use
  Company Number: NL-ASTELLAS-2016US010339

PATIENT

DRUGS (10)
  1. OMEPRAZOLE. [Suspect]
     Active Substance: OMEPRAZOLE
     Indication: CYSTIC FIBROSIS
     Route: 064
     Dates: start: 201507
  2. PANCREASE HL [Suspect]
     Active Substance: PANCRELIPASE
     Indication: PRODUCT USED FOR UNKNOWN INDICATION
     Dosage: UNK, UNKNOWN FREQ. SELF MANAGED
     Route: 064
     Dates: start: 201507
  3. COTRIMOXAZOL [Suspect]
     Active Substance: SULFAMETHOXAZOLE\TRIMETHOPRIM
     Indication: CYSTIC FIBROSIS
     Dosage: UNK, UNKNOWN FREQ. SELF MANAGED
     Route: 064
     Dates: start: 201507
  4. PROPRANOLOL /00030002/ [Suspect]
     Active Substance: PROPRANOLOL HYDROCHLORIDE
     Indication: CYSTIC FIBROSIS
     Route: 064
     Dates: start: 201507
  5. PROGRAFT [Suspect]
     Active Substance: TACROLIMUS
     Indication: CYSTIC FIBROSIS
     Route: 064
     Dates: start: 201507
  6. TOCOFEROL [Suspect]
     Active Substance: TOCOPHEROL
     Indication: CYSTIC FIBROSIS
     Dosage: 4 DF (25 MG/ML), ONCE DAILY
     Route: 064
     Dates: start: 201507
  7. URSOCHOL [Suspect]
     Active Substance: URSODIOL
     Indication: CYSTIC FIBROSIS
     Route: 064
     Dates: start: 201507
  8. MOMETASON NEUSSPRAY [Suspect]
     Active Substance: MOMETASONE FUROATE
     Indication: CYSTIC FIBROSIS
     Route: 064
     Dates: start: 201507
  9. PREDNISOLON [Suspect]
     Active Substance: PREDNISOLONE
     Indication: CYSTIC FIBROSIS
     Route: 064
     Dates: start: 201507
  10. AZATHIOPRINE. [Suspect]
     Active Substance: AZATHIOPRINE
     Indication: CYSTIC FIBROSIS
     Route: 064
     Dates: start: 201507

REACTIONS (2)
  - Foetal growth restriction [Recovering/Resolving]
  - Exposure during pregnancy [None]

NARRATIVE: CASE EVENT DATE: 201602
